FAERS Safety Report 20458359 (Version 3)
Quarter: 2022Q1

REPORT INFORMATION
  Report Type: Spontaneous
  Country: US (occurrence: US)
  Receive Date: 20220211
  Receipt Date: 20220221
  Transmission Date: 20220423
  Serious: Yes (Hospitalization, Other)
  Sender: FDA-Public Use
  Company Number: US-SA-2022SA037739

PATIENT
  Age: 81 Year
  Sex: Male
  Weight: 81.6 kg

DRUGS (6)
  1. PLAVIX [Suspect]
     Active Substance: CLOPIDOGREL BISULFATE
     Indication: Peripheral vascular disorder
     Dosage: UNK
     Dates: start: 20211105, end: 20220109
  2. LECANEMAB [Suspect]
     Active Substance: LECANEMAB
     Indication: Dementia Alzheimer^s type
     Dosage: 10 MG/KG, QOW
     Dates: start: 20191202, end: 20210517
  3. LECANEMAB [Suspect]
     Active Substance: LECANEMAB
     Dosage: 10 MG/KG, QOW
     Dates: start: 20210609, end: 20220104
  4. ASPIRIN [Suspect]
     Active Substance: ASPIRIN
     Indication: Cardiovascular event prophylaxis
     Dosage: UNK
     Route: 048
     Dates: start: 20210617, end: 20220109
  5. ELIQUIS [Suspect]
     Active Substance: APIXABAN
     Indication: Atrial fibrillation
     Dosage: 5 MG
     Dates: start: 20201211, end: 20220109
  6. ELIQUIS [Suspect]
     Active Substance: APIXABAN
     Dosage: 5 MG
     Dates: start: 20220114

REACTIONS (1)
  - Gastrointestinal haemorrhage [Unknown]
